FAERS Safety Report 7190556-0 (Version None)
Quarter: 2010Q4

REPORT INFORMATION
  Report Type: 
  Country: None (occurrence: None)
  Receive Date: 20101223
  Receipt Date: 20101216
  Transmission Date: 20110411
  Serious: Yes (Other)
  Sender: FDA-Public Use
  Company Number: DE-JNJFOC-20101205856

PATIENT
  Age: 3 Year
  Sex: Male
  Weight: 15 kg

DRUGS (2)
  1. HALDOL [Suspect]
     Indication: PRODUCT USED FOR UNKNOWN INDICATION
     Route: 051
  2. UNSPECIFED MEDICATIONS [Concomitant]
     Route: 065

REACTIONS (1)
  - STUPOR [None]
